FAERS Safety Report 9030549 (Version 1)
Quarter: 2013Q1

REPORT INFORMATION
  Report Type: Spontaneous
  Country: PL (occurrence: PL)
  Receive Date: 20130122
  Receipt Date: 20130122
  Transmission Date: 20140127
  Serious: Yes (Hospitalization, Other)
  Sender: FDA-Public Use
  Company Number: PL-CELGENEUS-129-21880-13011784

PATIENT
  Age: 49 Year
  Sex: Female

DRUGS (4)
  1. REVLIMID [Suspect]
     Indication: PLASMA CELL MYELOMA
     Route: 048
     Dates: start: 20120328, end: 20120414
  2. REVLIMID [Suspect]
     Route: 048
     Dates: start: 201205, end: 201209
  3. DEXAMETHASONE [Concomitant]
     Indication: PLASMA CELL MYELOMA
     Route: 065
     Dates: start: 20120328
  4. DEXAMETHASONE [Concomitant]
     Route: 065
     Dates: start: 201205, end: 201209

REACTIONS (5)
  - Ileus [Unknown]
  - Haemorrhagic urticaria [Recovered/Resolved]
  - Pancreatitis [Unknown]
  - Enteritis [Unknown]
  - Pneumonia pseudomonas aeruginosa [Recovered/Resolved]
